FAERS Safety Report 9233455 (Version 1)
Quarter: 2013Q2

REPORT INFORMATION
  Report Type: Spontaneous
  Country: US (occurrence: None)
  Receive Date: 20130416
  Receipt Date: 20130416
  Transmission Date: 20140414
  Serious: Yes (Hospitalization)
  Sender: FDA-Public Use
  Company Number: None

PATIENT
  Age: 77 Year
  Sex: Male
  Weight: 141.4 kg

DRUGS (1)
  1. WARFARIN [Suspect]
     Indication: ATRIAL FIBRILLATION
     Dosage: 6-8 MG  EVERY DAY  PO
     Route: 048
     Dates: start: 20030923

REACTIONS (3)
  - Lower gastrointestinal haemorrhage [None]
  - Diverticulum [None]
  - Haemorrhoids [None]
